FAERS Safety Report 18581977 (Version 45)
Quarter: 2025Q1

REPORT INFORMATION
  Report Type: Report from Study
  Country: CO (occurrence: CO)
  Receive Date: 20201204
  Receipt Date: 20250206
  Transmission Date: 20250409
  Serious: Yes (Disabling, Other)
  Sender: TAKEDA
  Company Number: CO-TAKEDA-CO202018961

PATIENT
  Age: 60 Year
  Sex: Female
  Weight: 74 kg

DRUGS (8)
  1. HUMAN IMMUNOGLOBULIN G [Suspect]
     Active Substance: HUMAN IMMUNOGLOBULIN G
     Indication: Primary immunodeficiency syndrome
  2. HUMAN IMMUNOGLOBULIN G [Suspect]
     Active Substance: HUMAN IMMUNOGLOBULIN G
     Indication: Polymyositis
     Dosage: 35 GRAM, Q4WEEKS
  3. HUMAN IMMUNOGLOBULIN G [Suspect]
     Active Substance: HUMAN IMMUNOGLOBULIN G
  4. HUMAN IMMUNOGLOBULIN G [Suspect]
     Active Substance: HUMAN IMMUNOGLOBULIN G
  5. HUMAN IMMUNOGLOBULIN G [Suspect]
     Active Substance: HUMAN IMMUNOGLOBULIN G
  6. HUMAN IMMUNOGLOBULIN G [Suspect]
     Active Substance: HUMAN IMMUNOGLOBULIN G
  7. PREDNISOLONE [Concomitant]
     Active Substance: PREDNISOLONE
  8. INSULIN NOS [Concomitant]
     Active Substance: INSULIN NOS

REACTIONS (56)
  - Diabetes mellitus [Not Recovered/Not Resolved]
  - Choking [Unknown]
  - Pain in extremity [Unknown]
  - Gait inability [Not Recovered/Not Resolved]
  - Discouragement [Not Recovered/Not Resolved]
  - Feeling of despair [Not Recovered/Not Resolved]
  - Off label use [Recovered/Resolved]
  - Arthralgia [Not Recovered/Not Resolved]
  - Asthenia [Recovering/Resolving]
  - Malaise [Recovering/Resolving]
  - Vomiting [Recovered/Resolved]
  - Headache [Recovered/Resolved]
  - Dizziness [Recovered/Resolved]
  - Nausea [Not Recovered/Not Resolved]
  - Myalgia [Recovered/Resolved]
  - Fatigue [Recovering/Resolving]
  - Infusion related reaction [Unknown]
  - Muscle strength abnormal [Not Recovered/Not Resolved]
  - Emotional distress [Unknown]
  - Depressed mood [Unknown]
  - Illness [Unknown]
  - Pulmonary pain [Unknown]
  - Impaired quality of life [Unknown]
  - Oropharyngeal discomfort [Unknown]
  - Aphonia [Unknown]
  - Influenza [Recovering/Resolving]
  - Somnolence [Unknown]
  - Muscular weakness [Recovered/Resolved]
  - Tachycardia [Unknown]
  - Chest discomfort [Unknown]
  - Chest pain [Unknown]
  - Anxiety [Unknown]
  - Depression [Recovered/Resolved]
  - General physical health deterioration [Not Recovered/Not Resolved]
  - Pain in jaw [Not Recovered/Not Resolved]
  - Movement disorder [Not Recovered/Not Resolved]
  - Dysstasia [Recovering/Resolving]
  - Hypersomnia [Not Recovered/Not Resolved]
  - Head injury [Not Recovered/Not Resolved]
  - Weight increased [Unknown]
  - Neck pain [Not Recovered/Not Resolved]
  - Fall [Not Recovered/Not Resolved]
  - Body height decreased [Unknown]
  - Crying [Unknown]
  - Blood glucose increased [Unknown]
  - Skin discolouration [Not Recovered/Not Resolved]
  - Muscle disorder [Unknown]
  - Product availability issue [Unknown]
  - Treatment noncompliance [Unknown]
  - Weight decreased [Unknown]
  - Inappropriate schedule of product administration [Unknown]
  - Ear pain [Recovering/Resolving]
  - Pain [Recovered/Resolved]
  - Oedema peripheral [Not Recovered/Not Resolved]
  - Back pain [Recovering/Resolving]
  - Chills [Recovered/Resolved]

NARRATIVE: CASE EVENT DATE: 20200505
